FAERS Safety Report 4657399-0 (Version None)
Quarter: 2005Q2

REPORT INFORMATION
  Report Type: 
  Country: None (occurrence: None)
  Receive Date: 20050405
  Receipt Date: 20040922
  Transmission Date: 20051028
  Serious: Yes (Hospitalization)
  Sender: FDA-Public Use
  Company Number: 2004069097

PATIENT
  Age: 51 Year
  Sex: Male

DRUGS (1)
  1. GEODON [Suspect]
     Indication: MENTAL STATUS CHANGES
     Dosage: 20 MG (20 MG, ONCE, INTRAMUSCULAR
     Route: 030
     Dates: start: 20040513, end: 20040513

REACTIONS (1)
  - ATRIAL FIBRILLATION [None]
